FAERS Safety Report 5614159-1 (Version None)
Quarter: 2008Q1

REPORT INFORMATION
  Report Type: 
  Country: None (occurrence: None)
  Receive Date: 20080205
  Receipt Date: 20080131
  Transmission Date: 20080703
  Serious: Yes (Death)
  Sender: FDA-Public Use
  Company Number: A0706655A

PATIENT
  Age: 64 Year
  Sex: Female

DRUGS (2)
  1. ZOFRAN [Suspect]
     Indication: CHEMOTHERAPY
     Dosage: 8MG UNKNOWN
     Route: 048
     Dates: end: 20080114
  2. NO CONCURRENT MEDICATION [Concomitant]

REACTIONS (1)
  - DEATH [None]
